APPROVED DRUG PRODUCT: TRETINOIN
Active Ingredient: TRETINOIN
Strength: 0.0375%
Dosage Form/Route: CREAM;TOPICAL
Application: A090098 | Product #001
Applicant: ALLERGAN SALES LLC
Approved: Mar 22, 2010 | RLD: No | RS: No | Type: DISCN